FAERS Safety Report 25738630 (Version 1)
Quarter: 2025Q3

REPORT INFORMATION
  Report Type: Spontaneous
  Country: US (occurrence: US)
  Receive Date: 20250829
  Receipt Date: 20250829
  Transmission Date: 20251021
  Serious: No
  Sender: MDD OPERATIONS
  Company Number: US-002147023-MDD202506-002286

PATIENT
  Age: 67 Year
  Sex: Male

DRUGS (4)
  1. ONAPGO [Suspect]
     Active Substance: APOMORPHINE HYDROCHLORIDE
     Indication: Parkinson^s disease
     Dosage: 98MG/20ML, UP TO 16 HOURS A DAY OF CONTINUOUS INFUSION/INFUSE CONTENTS OF 1 CARTRIDGE UNDER THE SKIN
     Route: 058
     Dates: start: 20250619
  2. ONAPGO [Suspect]
     Active Substance: APOMORPHINE HYDROCHLORIDE
     Dates: start: 20250624
  3. ONAPGO [Suspect]
     Active Substance: APOMORPHINE HYDROCHLORIDE
     Dosage: UP TO 16 HOURS A DAY OF CONTINUOUS INFUSION/INFUSE CONTENTS OF 1 CARTRIDGE UNDER THE SKIN FOR 16 HOU
     Dates: start: 2025
  4. CARBIDOPA\LEVODOPA [Concomitant]
     Active Substance: CARBIDOPA\LEVODOPA

REACTIONS (5)
  - Insomnia [Not Recovered/Not Resolved]
  - Infusion site bruising [Not Recovered/Not Resolved]
  - Dyskinesia [Unknown]
  - Nausea [Recovered/Resolved]
  - Injection site erythema [Recovered/Resolved]

NARRATIVE: CASE EVENT DATE: 20250101
